FAERS Safety Report 22606827 (Version 1)
Quarter: 2023Q2

REPORT INFORMATION
  Report Type: Spontaneous
  Country: ES (occurrence: ES)
  Receive Date: 20230615
  Receipt Date: 20230615
  Transmission Date: 20230722
  Serious: Yes (Hospitalization, Other)
  Sender: FDA-Public Use
  Company Number: None

PATIENT
  Age: 84 Year
  Sex: Female

DRUGS (2)
  1. LINEZOLID [Suspect]
     Active Substance: LINEZOLID
     Indication: Paraspinal abscess
     Dosage: 1200 MILLIGRAM DAILY; 600 MG. EVERY 12 HOURS  , THE FIRST DAYS IV, LATER ORAL,
     Route: 048
     Dates: start: 20191214, end: 20200422
  2. CEFIXIMA (2400A) [Concomitant]
     Indication: Paraspinal abscess
     Dosage: 400 MG
     Route: 048
     Dates: start: 20200109, end: 20200422

REACTIONS (4)
  - Neuropathy peripheral [Recovering/Resolving]
  - Normochromic normocytic anaemia [Recovered/Resolved]
  - Anaesthesia [Recovering/Resolving]
  - Vomiting [Recovering/Resolving]

NARRATIVE: CASE EVENT DATE: 20200323
